FAERS Safety Report 5019376-X (Version None)
Quarter: 2006Q2

REPORT INFORMATION
  Report Type: 
  Country: None (occurrence: None)
  Receive Date: 20060531
  Receipt Date: 20060522
  Transmission Date: 20061013
  Serious: Yes (Hospitalization)
  Sender: FDA-Public Use
  Company Number: 2006067330

PATIENT
  Age: 85 Year
  Sex: Female
  Weight: 68 kg

DRUGS (7)
  1. PREDNISONE TAB [Suspect]
     Indication: OPTIC NEURITIS
     Dosage: 30 MG (20 MG) ORAL
     Route: 048
     Dates: start: 20050501
  2. ALDACTAZINE (SPIRONOLACTONE, ALTIZIDE) [Suspect]
     Indication: ESSENTIAL HYPERTENSION
     Dosage: 1 DF (QD) ORAL
     Route: 048
     Dates: end: 20060223
  3. MORPHINE [Suspect]
     Indication: SPINAL FRACTURE
     Dosage: 5 MG (INTERVAL: EVERY DAY) SUBCUTANEOUS
     Route: 058
     Dates: start: 20060202, end: 20060303
  4. MORPHINE [Suspect]
     Indication: SPINAL FRACTURE
     Dosage: 20 MG; ORAL
     Route: 048
     Dates: start: 20060202, end: 20060210
  5. OMEPRAZOLE [Suspect]
     Indication: PROPHYLACTIC CHEMOTHERAPY
     Dosage: 20 MG (QD); ORAL
     Route: 048
     Dates: end: 20060301
  6. PAROXETINE [Suspect]
     Indication: DYSTHYMIC DISORDER
     Dosage: 20 MG (QD), ORAL
     Route: 048
     Dates: end: 20060223
  7. NEFOPAM [Concomitant]

REACTIONS (5)
  - CONFUSIONAL STATE [None]
  - DRUG INTERACTION [None]
  - HALLUCINATION [None]
  - HYPONATRAEMIA [None]
  - SPINAL COMPRESSION FRACTURE [None]
